FAERS Safety Report 7155863-6 (Version None)
Quarter: 2010Q4

REPORT INFORMATION
  Report Type: 
  Country: None (occurrence: None)
  Receive Date: 20101214
  Receipt Date: 20101130
  Transmission Date: 20110411
  Serious: Yes (Death, Life-Threatening, Hospitalization, Other)
  Sender: FDA-Public Use
  Company Number: JP-AMGEN-JPNSP2010008528

PATIENT

DRUGS (12)
  1. ENBREL [Suspect]
     Indication: RHEUMATOID ARTHRITIS
     Dosage: 25 MG, 2 TIMES/WK
     Route: 058
     Dates: start: 20090526, end: 20090605
  2. ENBREL [Suspect]
     Dosage: 25.0 MG, WEEKLY
     Route: 058
     Dates: start: 20090612, end: 20090731
  3. ENBREL [Suspect]
     Dosage: 25 MG, 2 TIMES/WK
     Route: 058
     Dates: start: 20090804, end: 20100112
  4. ENBREL [Suspect]
     Dosage: 25.0 MG, 2X/WEEK
     Route: 058
     Dates: start: 20100209, end: 20100101
  5. RHEUMATREX [Suspect]
     Indication: RHEUMATOID ARTHRITIS
     Dosage: 6.0 MG, WEEKLY
     Route: 048
     Dates: start: 20080125, end: 20100112
  6. PREDNISOLONE [Suspect]
     Indication: RHEUMATOID ARTHRITIS
     Dosage: 3.0 MG, 1X/DAY
     Route: 048
     Dates: start: 20090306, end: 20090716
  7. PREDNISOLONE [Suspect]
     Dosage: 6.0 MG, 1X/DAY
     Route: 048
     Dates: start: 20090717
  8. RIMATIL [Concomitant]
     Dosage: UNK
     Route: 048
     Dates: start: 20080229
  9. ISCOTIN [Concomitant]
     Dosage: UNK
     Route: 048
     Dates: start: 20080806
  10. LOXONIN [Concomitant]
     Dosage: UNK
     Route: 048
     Dates: start: 20080125
  11. MIGLITOL [Concomitant]
     Dosage: UNK
     Route: 048
     Dates: start: 20080624
  12. MUCOSTA [Concomitant]
     Dosage: UNK
     Route: 048
     Dates: start: 20080125

REACTIONS (3)
  - INTERSTITIAL LUNG DISEASE [None]
  - PNEUMONIA PNEUMOCOCCAL [None]
  - RESPIRATORY FAILURE [None]
